FAERS Safety Report 5774212-9 (Version None)
Quarter: 2008Q2

REPORT INFORMATION
  Report Type: 
  Country: None (occurrence: None)
  Receive Date: 20080616
  Receipt Date: 20080603
  Transmission Date: 20081010
  Serious: Yes (Other)
  Sender: FDA-Public Use
  Company Number: FR-ROCHE-563052

PATIENT
  Sex: Male
  Weight: 3.6 kg

DRUGS (13)
  1. ROCEPHIN [Suspect]
     Dosage: FORM: INJECTABLE SOLUTION. PATIENT RECEIVED 4 INJECTIONS WITHIN 24 HOURS
     Route: 065
     Dates: start: 20080503, end: 20080503
  2. ROCEPHIN [Suspect]
     Dosage: DOSAGE REGIMEN: 180 MG/24 HOURS
     Route: 065
     Dates: start: 20080504, end: 20080506
  3. VITAMIN K1 [Concomitant]
  4. CALCIUM [Concomitant]
     Route: 048
     Dates: start: 20080505, end: 20080506
  5. GLUCOSE [Concomitant]
  6. AMOXICILLIN [Concomitant]
     Indication: INFECTION
     Dosage: INITIAL DOSAGE
     Route: 042
     Dates: start: 20080503, end: 20080503
  7. AMOXICILLIN [Concomitant]
     Route: 042
     Dates: end: 20080512
  8. UVESTEROL [Concomitant]
     Dosage: DRUG NAME REPORTED AS: UVESTEROL ADEC
     Route: 048
     Dates: start: 20080506
  9. UVESTEROL [Concomitant]
     Dosage: DRUG NAME REPORTED AS: UVESTEROL ADEC
     Route: 048
     Dates: start: 20080506
  10. UVESTEROL [Concomitant]
     Dosage: DRUG NAME REPORTED AS: UVESTEROL ADEC
     Route: 048
     Dates: start: 20080506
  11. UVESTEROL [Concomitant]
     Dosage: DRUG NAME REPORTED AS: UVESTEROL ADEC
     Route: 048
     Dates: start: 20080506
  12. 1 CONCOMITANT DRUG [Concomitant]
     Indication: INFECTION
     Dosage: DRUG REPORTED AS: METROMYCINE
     Route: 042
     Dates: start: 20080503, end: 20080505
  13. CALCIUM GLUCONATE [Concomitant]
     Indication: HYPERGLYCAEMIA
     Dosage: DOSAGE REGIMEN AT: 71 MG/100 ML
     Route: 048
     Dates: start: 20080505, end: 20080506

REACTIONS (3)
  - ACCIDENTAL OVERDOSE [None]
  - BRADYCARDIA [None]
  - HYPOCALCAEMIA [None]
